FAERS Safety Report 4654389-9 (Version None)
Quarter: 2005Q2

REPORT INFORMATION
  Report Type: 
  Country: None (occurrence: None)
  Receive Date: 20050506
  Receipt Date: 20050428
  Transmission Date: 20051028
  Serious: Yes (Congenital Anomaly, Other)
  Sender: FDA-Public Use
  Company Number: FR-SOLVAY-00305001420

PATIENT
  Sex: Male

DRUGS (3)
  1. CORTICOSTEROIDS [Concomitant]
     Indication: DRUG EXPOSURE DURING PREGNANCY
     Dosage: DAILY DOSE:  UNKNOWN
     Route: 064
  2. ROWASA [Suspect]
     Indication: DRUG EXPOSURE DURING PREGNANCY
     Dosage: DAILY DOSE: 500 MILLIGRAM(S)
     Route: 064
  3. ATARAX [Suspect]
     Indication: DRUG EXPOSURE DURING PREGNANCY
     Dosage: DAILY DOSE:  UNKNOWN
     Route: 064

REACTIONS (6)
  - CLINODACTYLY [None]
  - EPILEPSY [None]
  - FACIAL DYSMORPHISM [None]
  - HYPOTONIA [None]
  - PENILE SIZE REDUCED [None]
  - PYLORIC STENOSIS [None]
